FAERS Safety Report 12461444 (Version 2)
Quarter: 2016Q2

REPORT INFORMATION
  Report Type: Spontaneous
  Country: BR (occurrence: BR)
  Receive Date: 20160613
  Receipt Date: 20160624
  Transmission Date: 20160815
  Serious: Yes (Death, Hospitalization, Other)
  Sender: FDA-Public Use
  Company Number: BR-ELI_LILLY_AND_COMPANY-BR201606003949

PATIENT
  Age: 72 Year
  Sex: Male
  Weight: 64 kg

DRUGS (9)
  1. FLUOROURACIL. [Concomitant]
     Active Substance: FLUOROURACIL
     Dosage: 682.8 MG, UNKNOWN
     Route: 042
  2. IRINOTECAN [Concomitant]
     Active Substance: IRINOTECAN
     Indication: COLON CANCER
     Dosage: 307.26 MG, UNKNOWN
     Route: 042
     Dates: start: 20160323
  3. LORAX                              /00273201/ [Concomitant]
     Indication: PRODUCT USED FOR UNKNOWN INDICATION
     Dosage: UNK
  4. HIGROTON [Concomitant]
     Active Substance: CHLORTHALIDONE
     Indication: PRODUCT USED FOR UNKNOWN INDICATION
     Dosage: UNK
  5. CALCIUM FOLINATE [Concomitant]
     Active Substance: LEUCOVORIN CALCIUM
     Indication: COLON CANCER
     Dosage: 341.4 MG, UNKNOWN
     Route: 042
     Dates: start: 20160323
  6. ENALAPRIL [Concomitant]
     Active Substance: ENALAPRIL
     Indication: PRODUCT USED FOR UNKNOWN INDICATION
     Dosage: UNK
  7. ROXFLAN [Concomitant]
     Active Substance: AMLODIPINE BESYLATE
     Indication: PRODUCT USED FOR UNKNOWN INDICATION
     Dosage: UNK
  8. ERBITUX [Suspect]
     Active Substance: CETUXIMAB
     Indication: COLON CANCER
     Dosage: 853.5 MG, UNKNOWN
     Route: 042
     Dates: start: 20160323
  9. FLUOROURACIL. [Concomitant]
     Active Substance: FLUOROURACIL
     Indication: COLON CANCER
     Dosage: 4096.8 MG, UNKNOWN
     Route: 042
     Dates: start: 20160323

REACTIONS (9)
  - Brain death [Fatal]
  - Vomiting [Fatal]
  - Shock [Fatal]
  - Seizure [Fatal]
  - Acute kidney injury [Fatal]
  - Acidosis [Fatal]
  - Dehydration [Fatal]
  - Hypernatraemia [Fatal]
  - Diarrhoea [Fatal]

NARRATIVE: CASE EVENT DATE: 201605
